FAERS Safety Report 7687597-3 (Version None)
Quarter: 2011Q3

REPORT INFORMATION
  Report Type: 
  Country: None (occurrence: None)
  Receive Date: 20110817
  Receipt Date: 20110808
  Transmission Date: 20111222
  Serious: Yes (Other)
  Sender: FDA-Public Use
  Company Number: US-CEPHALON-US022192

PATIENT
  Sex: Female
  Weight: 82 kg

DRUGS (5)
  1. SYNTHROID [Concomitant]
     Indication: HYPOTHYROIDISM
     Dosage: 0.75 DAILY
     Route: 065
  2. PROVIGIL [Suspect]
     Indication: HYPERSOMNIA
     Route: 048
     Dates: start: 20020405, end: 20020801
  3. MOTRIN [Concomitant]
     Route: 065
  4. ZOLOFT [Concomitant]
     Indication: DEPRESSION
     Route: 065
  5. BIRTH CONTROL [Concomitant]
     Indication: CONTRACEPTION
     Route: 065

REACTIONS (2)
  - DIABETES MELLITUS [None]
  - MATERNAL EXPOSURE DURING PREGNANCY [None]
